FAERS Safety Report 7435364-8 (Version None)
Quarter: 2011Q2

REPORT INFORMATION
  Report Type: 
  Country: None (occurrence: None)
  Receive Date: 20110425
  Receipt Date: 20110414
  Transmission Date: 20111010
  Serious: Yes (Hospitalization)
  Sender: FDA-Public Use
  Company Number: B0714042A

PATIENT
  Sex: Male
  Weight: 64 kg

DRUGS (9)
  1. ALOSENN [Concomitant]
     Dosage: 1G PER DAY
     Route: 048
     Dates: start: 20090803, end: 20090804
  2. KYTRIL [Concomitant]
     Dosage: 6MG PER DAY
     Dates: start: 20090803, end: 20090804
  3. ALKERAN [Suspect]
     Indication: STEM CELL TRANSPLANT
     Dosage: 100MGM2 PER DAY
     Route: 042
     Dates: start: 20090803, end: 20090804
  4. GRAN [Concomitant]
     Dates: start: 20090811, end: 20090816
  5. MUCOSTA [Concomitant]
     Dosage: 300MG PER DAY
     Route: 048
     Dates: start: 20090804, end: 20090814
  6. CRAVIT [Concomitant]
     Dosage: 400MG PER DAY
     Route: 048
     Dates: start: 20090803, end: 20090813
  7. DIFLUCAN [Concomitant]
     Dosage: 400MG PER DAY
     Route: 048
     Dates: start: 20090803, end: 20090813
  8. VICCLOX [Concomitant]
     Dosage: 1000MG PER DAY
     Route: 048
     Dates: start: 20090803, end: 20090814
  9. PRIMPERAN TAB [Concomitant]
     Dosage: 20MG PER DAY
     Dates: start: 20090804, end: 20090805

REACTIONS (1)
  - FEBRILE NEUTROPENIA [None]
